FAERS Safety Report 8046697-9 (Version None)
Quarter: 2012Q1

REPORT INFORMATION
  Report Type: 
  Country: None (occurrence: None)
  Receive Date: 20120116
  Receipt Date: 20120110
  Transmission Date: 20120608
  Serious: Yes (Other)
  Sender: FDA-Public Use
  Company Number: US-BRISTOL-MYERS SQUIBB COMPANY-16342404

PATIENT
  Age: 41 Year
  Sex: Female
  Weight: 75 kg

DRUGS (7)
  1. CYMBALTA [Concomitant]
  2. LAMOTRIGINE [Concomitant]
  3. MELATONIN [Concomitant]
  4. ABILIFY [Suspect]
     Indication: BIPOLAR DISORDER
     Dosage: STARTED AS 30MG THEN DOSE WAS REDUCED TO 2-4MG/DAILY AGENT DOSAGE:2MG RECEIVING FOR 6-8 MONTHS
  5. ATARAX [Concomitant]
  6. MINOCYCLINE HCL [Concomitant]
  7. TOPAMAX [Concomitant]

REACTIONS (6)
  - TARDIVE DYSKINESIA [None]
  - TREMOR [None]
  - WRONG TECHNIQUE IN DRUG USAGE PROCESS [None]
  - RESTLESSNESS [None]
  - CONTUSION [None]
  - MANIA [None]
